FAERS Safety Report 6277640-0 (Version None)
Quarter: 2009Q3

REPORT INFORMATION
  Report Type: 
  Country: None (occurrence: None)
  Receive Date: 20090717
  Receipt Date: 20090717
  Transmission Date: 20100115
  Serious: Yes (Other)
  Sender: FDA-Public Use
  Company Number: None

PATIENT
  Age: 26 Year
  Sex: Male
  Weight: 61.2356 kg

DRUGS (6)
  1. SEROQUEL [Suspect]
     Indication: BIPOLAR DISORDER
     Dosage: ONCE DAILY/NIGHTLY PO
     Route: 048
     Dates: start: 20090310, end: 20090715
  2. SEROQUEL [Suspect]
     Indication: DEPRESSION
     Dosage: ONCE DAILY/NIGHTLY PO
     Route: 048
     Dates: start: 20090310, end: 20090715
  3. SEROQUEL [Suspect]
     Indication: PSYCHOTHERAPY
     Dosage: ONCE DAILY/NIGHTLY PO
     Route: 048
     Dates: start: 20090310, end: 20090715
  4. SEROQUEL [Suspect]
     Indication: SCHIZOPHRENIA
     Dosage: ONCE DAILY/NIGHTLY PO
     Route: 048
     Dates: start: 20090310, end: 20090715
  5. ZYPREXA [Concomitant]
  6. INVEGA [Concomitant]

REACTIONS (11)
  - BLADDER DISORDER [None]
  - DIARRHOEA [None]
  - DYSPNOEA [None]
  - DYSURIA [None]
  - HEART RATE INCREASED [None]
  - HEART RATE IRREGULAR [None]
  - HYPERHIDROSIS [None]
  - LYMPHADENOPATHY [None]
  - MOOD ALTERED [None]
  - SPONTANEOUS PENILE ERECTION [None]
  - SWELLING [None]
